FAERS Safety Report 9686382 (Version 1)
Quarter: 2013Q4

REPORT INFORMATION
  Report Type: Spontaneous
  Country: FR (occurrence: FR)
  Receive Date: 20131113
  Receipt Date: 20131113
  Transmission Date: 20140711
  Serious: Yes (Hospitalization)
  Sender: FDA-Public Use
  Company Number: FR-BRISTOL-MYERS SQUIBB COMPANY-19803584

PATIENT
  Age: 71 Year
  Sex: Female

DRUGS (11)
  1. METFORMIN HCL [Suspect]
     Route: 048
     Dates: start: 20120802
  2. LEVOTHYROX [Suspect]
     Route: 048
     Dates: start: 20120802
  3. COVERSYL [Suspect]
     Route: 048
     Dates: start: 20120802
  4. PROZAC [Suspect]
  5. INEXIUM [Suspect]
     Route: 048
     Dates: start: 20120802
  6. PLAVIX [Suspect]
     Route: 048
     Dates: start: 20120802
  7. MONOALGIC [Suspect]
     Route: 048
     Dates: start: 20120802
  8. TAHOR [Suspect]
     Route: 048
     Dates: start: 20120802
  9. MONO-TILDIEM [Suspect]
     Dosage: 300MG, GASTRO-RESISTANT CAPS
     Route: 048
     Dates: start: 20120802
  10. JANUVIA [Suspect]
     Route: 048
     Dates: start: 20120802
  11. CORTANCYL [Suspect]
     Dosage: MRNG?5MG POTENCY
     Route: 048
     Dates: start: 20120802

REACTIONS (3)
  - Pemphigoid [Recovering/Resolving]
  - Erythema [Recovering/Resolving]
  - Pruritus [Recovering/Resolving]
